FAERS Safety Report 6044744-7 (Version None)
Quarter: 2009Q1

REPORT INFORMATION
  Report Type: 
  Country: None (occurrence: None)
  Receive Date: 20090120
  Receipt Date: 20090114
  Transmission Date: 20090719
  Serious: No
  Sender: FDA-Public Use
  Company Number: US-B.I. PHARMACEUTICALS,INC./RIDGEFIELD-2009-BP-00492BP

PATIENT

DRUGS (3)
  1. VIRAMUNE [Suspect]
     Indication: HIV INFECTION
  2. EPIVIR [Concomitant]
     Indication: HIV INFECTION
  3. ZERIT [Concomitant]
     Indication: HIV INFECTION

REACTIONS (2)
  - CD4 LYMPHOCYTES DECREASED [None]
  - GENITAL HERPES [None]
